FAERS Safety Report 10753746 (Version 1)
Quarter: 2015Q1

REPORT INFORMATION
  Report Type: Other
  Country: GB (occurrence: GB)
  Receive Date: 20150201
  Receipt Date: 20150201
  Transmission Date: 20150721
  Serious: Yes (Hospitalization)
  Sender: FDA-Public Use
  Company Number: GB-MYLANLABS-2015M1001558

PATIENT

DRUGS (22)
  1. SALINE [Concomitant]
     Active Substance: SODIUM CHLORIDE
     Dosage: 8 ML, TID
  2. APREPITANT. [Interacting]
     Active Substance: APREPITANT
     Dosage: 125 MG, BID
     Route: 048
     Dates: start: 20141209
  3. CYCLIZINE [Concomitant]
     Active Substance: CYCLIZINE
     Route: 042
  4. MESALAZINE [Concomitant]
     Active Substance: MESALAMINE
     Dosage: 500 MG, QD
     Route: 054
  5. VITAMIN A                          /00056001/ [Concomitant]
     Active Substance: RETINOL
     Dosage: 10000 IU, QD
     Route: 048
  6. CYCLIZINE [Concomitant]
     Active Substance: CYCLIZINE
     Dosage: 50 MG, TID
     Route: 048
  7. RANITIDINE [Concomitant]
     Active Substance: RANITIDINE\RANITIDINE HYDROCHLORIDE
     Dosage: 140 MG, BID
     Route: 048
  8. ITRACONAZOLE. [Concomitant]
     Active Substance: ITRACONAZOLE
     Dosage: 400 MG, BID
     Route: 048
  9. SELENIUM [Concomitant]
     Active Substance: SELENIUM
     Dosage: 100 ?G, QD
     Route: 048
  10. VITAMIN B COMPLEX STRONG [Concomitant]
     Dosage: 2 DF, TID
     Route: 048
  11. AMITRIPTYLINE [Concomitant]
     Active Substance: AMITRIPTYLINE
     Dosage: 40 MG, QD
     Route: 048
  12. SALBUTAMOL [Concomitant]
     Active Substance: ALBUTEROL
     Dosage: 5 MG, UNK
  13. SODIUM CHLORIDE. [Concomitant]
     Active Substance: SODIUM CHLORIDE
     Dosage: 17 MMOL, QD
     Route: 048
  14. TERBINAFINE [Concomitant]
     Active Substance: TERBINAFINE
     Dosage: 250 MG, QD
     Route: 048
  15. CLARITHROMYCIN. [Suspect]
     Active Substance: CLARITHROMYCIN
     Indication: CYSTIC FIBROSIS
     Dosage: 250 MG, BID
     Route: 048
     Dates: start: 20141204, end: 20141231
  16. APREPITANT. [Interacting]
     Active Substance: APREPITANT
     Indication: NAUSEA
     Dosage: 80 MG, BID
     Route: 048
     Dates: start: 20141125, end: 20141209
  17. COLECALCIFEROL [Concomitant]
     Active Substance: CHOLECALCIFEROL
     Dosage: 800 IU, QD
     Route: 048
  18. OMEPRAZOLE. [Concomitant]
     Active Substance: OMEPRAZOLE
     Dosage: 10 MG, QD
     Route: 048
  19. VITAMIN K SUBSTANCES [Concomitant]
     Dosage: 10 MG, QD
     Route: 048
  20. DORNASE ALFA [Concomitant]
     Active Substance: DORNASE ALFA
     Dosage: 2.5 MG, BID
  21. FORCEVAL [Concomitant]
     Active Substance: FOLIC ACID\IRON\MINERALS\VITAMINS
     Dosage: UNK
  22. LOPERAMIDE [Concomitant]
     Active Substance: LOPERAMIDE
     Dosage: 2 MG, BID
     Route: 048

REACTIONS (3)
  - Off label use [Unknown]
  - Tachycardia [Unknown]
  - Drug interaction [Unknown]

NARRATIVE: CASE EVENT DATE: 20141125
